FAERS Safety Report 7680494-9 (Version None)
Quarter: 2011Q3

REPORT INFORMATION
  Report Type: 
  Country: None (occurrence: None)
  Receive Date: 20110812
  Receipt Date: 20110803
  Transmission Date: 20111222
  Serious: Yes (Death, Hospitalization)
  Sender: FDA-Public Use
  Company Number: US-BAXTER-2011BH024286

PATIENT
  Age: 86 Year
  Sex: Male

DRUGS (1)
  1. DIANEAL PD-2 W/ DEXTROSE 1.5% [Suspect]
     Indication: PERITONEAL DIALYSIS
     Route: 033
     Dates: end: 20110725

REACTIONS (4)
  - DEATH [None]
  - HYPOTENSION [None]
  - MENTAL STATUS CHANGES [None]
  - HYPOGLYCAEMIA [None]
